FAERS Safety Report 10034074 (Version 1)
Quarter: 2014Q1

REPORT INFORMATION
  Report Type: Spontaneous
  Country: US (occurrence: None)
  Receive Date: 20140324
  Receipt Date: 20140324
  Transmission Date: 20141002
  Serious: Yes (Hospitalization)
  Sender: FDA-Public Use
  Company Number: None

PATIENT
  Age: 73 Year
  Sex: Male
  Weight: 74.2 kg

DRUGS (2)
  1. CARBOPLATIN [Suspect]
     Dates: end: 20140226
  2. PACLITAXEL [Suspect]
     Dates: end: 20140226

REACTIONS (5)
  - Fatigue [None]
  - Demyelination [None]
  - Klebsiella infection [None]
  - Fall [None]
  - Balance disorder [None]
